FAERS Safety Report 12959748 (Version 1)
Quarter: 2016Q4

REPORT INFORMATION
  Report Type: Spontaneous
  Country: US (occurrence: US)
  Receive Date: 20161121
  Receipt Date: 20161121
  Transmission Date: 20170207
  Serious: No
  Sender: FDA-Public Use
  Company Number: US-JNJFOC-20161100635

PATIENT
  Sex: Female

DRUGS (3)
  1. PROTONIX [Concomitant]
     Active Substance: PANTOPRAZOLE SODIUM
     Indication: GASTRIC DISORDER
     Route: 065
  2. MOTRIN IB [Suspect]
     Active Substance: IBUPROFEN
     Indication: TOOTHACHE
     Dosage: TWO TIMES, 2 DAYS
     Route: 048
  3. MOTRIN IB [Suspect]
     Active Substance: IBUPROFEN
     Indication: ORAL PAIN
     Dosage: TWO TIMES, 2 DAYS
     Route: 048

REACTIONS (1)
  - Gastrointestinal disorder [Recovered/Resolved]
